FAERS Safety Report 13976452 (Version 1)
Quarter: 2017Q3

REPORT INFORMATION
  Report Type: Spontaneous
  Country: US (occurrence: US)
  Receive Date: 20170915
  Receipt Date: 20170915
  Transmission Date: 20171128
  Serious: Yes (Other)
  Sender: FDA-Public Use
  Company Number: US-TEVA-806258USA

PATIENT
  Sex: Male
  Weight: 74.91 kg

DRUGS (9)
  1. CRESTOR [Concomitant]
     Active Substance: ROSUVASTATIN CALCIUM
  2. LEVOTHYROXINE. [Concomitant]
     Active Substance: LEVOTHYROXINE
  3. FENTORA [Suspect]
     Active Substance: FENTANYL CITRATE
     Indication: CANCER PAIN
     Route: 065
  4. FENTORA [Suspect]
     Active Substance: FENTANYL CITRATE
     Route: 065
  5. ASPIRIN. [Concomitant]
     Active Substance: ASPIRIN
  6. KETAMINE [Concomitant]
     Active Substance: KETAMINE
  7. DIAZEPAM. [Concomitant]
     Active Substance: DIAZEPAM
     Indication: MUSCLE SPASMS
  8. ENALAPRIL [Concomitant]
     Active Substance: ENALAPRIL
  9. SUBSYS [Concomitant]
     Active Substance: FENTANYL

REACTIONS (2)
  - Pain [Unknown]
  - Malignant neoplasm progression [Unknown]
